FAERS Safety Report 5742097-2 (Version None)
Quarter: 2008Q2

REPORT INFORMATION
  Report Type: 
  Country: None (occurrence: None)
  Receive Date: 20080519
  Receipt Date: 20080509
  Transmission Date: 20081010
  Serious: Yes (Other)
  Sender: FDA-Public Use
  Company Number: GB-MERCK-0805GBR00058

PATIENT
  Age: 31 Year
  Sex: Female
  Weight: 101 kg

DRUGS (2)
  1. DECADRON SRC [Suspect]
     Indication: ANTIEMETIC SUPPORTIVE CARE
     Route: 065
     Dates: start: 20080425, end: 20080425
  2. GENERAL ANESTHESIA (UNSPECIFIED) [Concomitant]
     Route: 065

REACTIONS (1)
  - ACUTE PSYCHOSIS [None]
